FAERS Safety Report 7446155-6 (Version None)
Quarter: 2011Q2

REPORT INFORMATION
  Report Type: 
  Country: None (occurrence: None)
  Receive Date: 20110429
  Receipt Date: 20110421
  Transmission Date: 20111010
  Serious: Yes (Other)
  Sender: FDA-Public Use
  Company Number: B0715067A

PATIENT
  Sex: Female
  Weight: 69 kg

DRUGS (8)
  1. HEPARIN SODIUM [Concomitant]
     Dosage: 5000IU PER DAY
     Dates: start: 20070120, end: 20070223
  2. ACIROVEC [Concomitant]
     Dosage: 750MG PER DAY
     Route: 042
     Dates: start: 20070120, end: 20070223
  3. METHOTREXATE [Concomitant]
     Dosage: 10MG PER DAY
     Route: 065
     Dates: start: 20070127, end: 20070127
  4. METHOTREXATE [Concomitant]
     Dosage: 10MG PER DAY
     Route: 065
     Dates: start: 20070130, end: 20070130
  5. CYCLOSPORINE [Concomitant]
     Indication: IMMUNOSUPPRESSION
     Dosage: 200MG PER DAY
     Route: 065
     Dates: start: 20070123
  6. METHOTREXATE [Concomitant]
     Indication: IMMUNOSUPPRESSION
     Dosage: 15MG PER DAY
     Route: 065
     Dates: start: 20070125, end: 20070125
  7. ALKERAN [Suspect]
     Indication: ALLOGENIC BONE MARROW TRANSPLANTATION THERAPY
     Dosage: 116MGM2 PER DAY
     Route: 042
     Dates: start: 20070120, end: 20070120
  8. ALKERAN [Suspect]
     Dosage: 116MGM2 PER DAY
     Route: 042
     Dates: start: 20070122, end: 20070122

REACTIONS (1)
  - OROPHARYNGEAL PAIN [None]
